FAERS Safety Report 5321158-6 (Version None)
Quarter: 2007Q2

REPORT INFORMATION
  Report Type: 
  Country: None (occurrence: None)
  Receive Date: 20070507
  Receipt Date: 20070507
  Transmission Date: 20071010
  Serious: Yes (Life-Threatening, Disabling, Other)
  Sender: FDA-Public Use
  Company Number: None

PATIENT
  Age: 52 Year
  Sex: Male
  Weight: 97.5234 kg

DRUGS (1)
  1. AMBIEN [Suspect]
     Indication: INSOMNIA
     Dosage: 2 ONCE PO
     Route: 048
     Dates: start: 20070501, end: 20070501

REACTIONS (3)
  - DYSSTASIA [None]
  - HALLUCINATION, VISUAL [None]
  - RESPIRATORY ARREST [None]
